FAERS Safety Report 21158155 (Version 2)
Quarter: 2022Q3

REPORT INFORMATION
  Report Type: Spontaneous
  Country: IT (occurrence: IT)
  Receive Date: 20220801
  Receipt Date: 20220804
  Transmission Date: 20221027
  Serious: Yes (Other)
  Sender: FDA-Public Use
  Company Number: None

PATIENT
  Age: 47 Year
  Sex: Female

DRUGS (6)
  1. AUBAGIO [Suspect]
     Active Substance: TERIFLUNOMIDE
     Indication: Multiple sclerosis
     Dosage: 1 DF, QD
     Route: 048
     Dates: start: 20211203, end: 20220616
  2. OXCARBAZEPINE [Concomitant]
     Active Substance: OXCARBAZEPINE
     Dosage: 600 + 600 + 300 MG / DAY
  3. FLUTICASONE PROPIONATE\FORMOTEROL FUMARATE [Concomitant]
     Active Substance: FLUTICASONE PROPIONATE\FORMOTEROL FUMARATE
     Dosage: 1 INHALATION X 2 / DAY
  4. SIMVASTATIN [Concomitant]
     Active Substance: SIMVASTATIN
     Indication: Hypercholesterolaemia
     Dosage: 20 MG 1 TABLET / DAY
  5. ALMOTRIPTAN MALATE [Concomitant]
     Active Substance: ALMOTRIPTAN MALATE
     Dosage: AS NEEDED
  6. OXCARBAZEPINE [Concomitant]
     Active Substance: OXCARBAZEPINE
     Dosage: 1.5 G, QD (600+600+300 MG/DAY )

REACTIONS (1)
  - Desmoid tumour [Recovering/Resolving]

NARRATIVE: CASE EVENT DATE: 20220325
